FAERS Safety Report 6709883-3 (Version None)
Quarter: 2010Q2

REPORT INFORMATION
  Report Type: 
  Country: None (occurrence: None)
  Receive Date: 20100504
  Receipt Date: 20100423
  Transmission Date: 20101027
  Serious: Yes (Other)
  Sender: FDA-Public Use
  Company Number: SE-JNJFOC-20100406953

PATIENT
  Age: 78 Year
  Sex: Female

DRUGS (8)
  1. REMICADE [Suspect]
     Indication: RHEUMATOID ARTHRITIS
     Route: 042
     Dates: start: 20051101, end: 20081105
  2. ACETAMINOPHEN [Concomitant]
     Route: 048
  3. IMUREL [Concomitant]
     Route: 048
  4. PREDNISOLONE [Concomitant]
     Route: 048
  5. LIPITOR [Concomitant]
     Route: 048
  6. ENALAPRIL [Concomitant]
     Route: 048
  7. AZATHIOPRINE [Concomitant]
     Route: 048
  8. OPTINATE [Concomitant]
     Route: 048

REACTIONS (1)
  - BREAST CANCER [None]
